FAERS Safety Report 9959801 (Version 1)
Quarter: 2014Q1

REPORT INFORMATION
  Report Type: Spontaneous
  Country: US (occurrence: None)
  Receive Date: 20140228
  Receipt Date: 20140228
  Transmission Date: 20141002
  Serious: Yes (Other)
  Sender: FDA-Public Use
  Company Number: ADR-2013-01918

PATIENT
  Sex: Male

DRUGS (2)
  1. BACLOFEN INTRATHECAL 2000 MCG/ML (CANGENE) [Suspect]
     Indication: MUSCLE SPASTICITY
  2. ORAL BACLOFEN [Suspect]

REACTIONS (13)
  - Staphylococcal infection [None]
  - Device malfunction [None]
  - Device breakage [None]
  - Wound dehiscence [None]
  - Wound abscess [None]
  - Implant site infection [None]
  - Muscle spasticity [None]
  - Convulsion [None]
  - Pneumonia streptococcal [None]
  - Tachycardia [None]
  - Irritability [None]
  - Clonus [None]
  - Hypertonia [None]
